FAERS Safety Report 13208155 (Version 1)
Quarter: 2017Q1

REPORT INFORMATION
  Report Type: Spontaneous
  Country: RU (occurrence: RU)
  Receive Date: 20170209
  Receipt Date: 20170209
  Transmission Date: 20170428
  Serious: Yes (Other)
  Sender: FDA-Public Use
  Company Number: RU-BAYER-2017-018855

PATIENT
  Age: 30 Year
  Sex: Female

DRUGS (1)
  1. QLAIRA [Suspect]
     Active Substance: DIENOGEST\ESTRADIOL VALERATE
     Indication: CONTRACEPTION
     Route: 048

REACTIONS (3)
  - Aspartate aminotransferase increased [None]
  - Echinococciasis [None]
  - Alanine aminotransferase increased [None]

NARRATIVE: CASE EVENT DATE: 201607
